FAERS Safety Report 4485849-1 (Version None)
Quarter: 2004Q3

REPORT INFORMATION
  Report Type: 
  Country: None (occurrence: None)
  Receive Date: 20040921
  Receipt Date: 20030806
  Transmission Date: 20050211
  Serious: Yes (Death, Life-Threatening, Hospitalization)
  Sender: FDA-Public Use
  Company Number: 163-20785-03100069

PATIENT
  Age: 67 Year
  Sex: Male
  Weight: 69.9 kg

DRUGS (1)
  1. THALOMID [Suspect]
     Indication: MYELOFIBROSIS
     Dosage: 50 MG, QD, ORAL
     Route: 048
     Dates: start: 20020514, end: 20020930

REACTIONS (16)
  - ARRHYTHMIA [None]
  - BRADYCARDIA [None]
  - CARDIAC ARREST [None]
  - DEATH [None]
  - HYPERKALAEMIA [None]
  - HYPERURICAEMIA [None]
  - HYPOTENSION [None]
  - HYPOXIA [None]
  - NEUROPATHY [None]
  - PLATELET DISORDER [None]
  - PNEUMONITIS [None]
  - PNEUMOTHORAX [None]
  - PSEUDOMONAL SEPSIS [None]
  - RENAL FAILURE [None]
  - RESPIRATORY DISTRESS [None]
  - VENTRICULAR DYSFUNCTION [None]
